FAERS Safety Report 6675657-5 (Version None)
Quarter: 2010Q2

REPORT INFORMATION
  Report Type: 
  Country: None (occurrence: None)
  Receive Date: 20100409
  Receipt Date: 20100405
  Transmission Date: 20101027
  Serious: Yes (Death)
  Sender: FDA-Public Use
  Company Number: US-ABBOTT-10P-163-0636394-00

PATIENT
  Sex: Male
  Weight: 117.13 kg

DRUGS (13)
  1. ZEMPLAR [Suspect]
     Indication: RENAL DISORDER
     Dosage: ONE TABLET DAILY MONDAY THROUGH FRIDAY
     Route: 048
  2. ZEMPLAR [Suspect]
     Indication: PARATHYROID DISORDER
     Dosage: ONE TABLET DAILY MON, WED, AND FRIDAY
  3. COUMADIN [Concomitant]
     Indication: DRUG USE FOR UNKNOWN INDICATION
     Route: 048
  4. METOPROLOL SUCC. [Concomitant]
     Indication: DRUG USE FOR UNKNOWN INDICATION
     Route: 048
  5. LIPITOR [Concomitant]
     Indication: DRUG USE FOR UNKNOWN INDICATION
     Route: 048
  6. GLIPAZIDE [Concomitant]
     Indication: DIABETES MELLITUS
     Route: 048
  7. NIACIN [Concomitant]
     Indication: DRUG USE FOR UNKNOWN INDICATION
     Route: 048
  8. KLOR-CON [Concomitant]
     Indication: DRUG USE FOR UNKNOWN INDICATION
     Route: 048
  9. ICAPS [Concomitant]
     Indication: DRUG USE FOR UNKNOWN INDICATION
  10. FUROSEMIDE [Concomitant]
     Indication: DRUG USE FOR UNKNOWN INDICATION
     Route: 048
  11. ISOSORBIDE DINITRATE [Concomitant]
     Indication: DRUG USE FOR UNKNOWN INDICATION
     Route: 048
  12. ASPIRIN [Concomitant]
     Indication: DRUG USE FOR UNKNOWN INDICATION
     Route: 048
  13. NITROGLYCERIN [Concomitant]
     Indication: DRUG USE FOR UNKNOWN INDICATION
     Route: 060

REACTIONS (3)
  - ASTHENIA [None]
  - CARDIAC ARREST [None]
  - CARDIOMYOPATHY [None]
